FAERS Safety Report 8008433-1 (Version None)
Quarter: 2011Q4

REPORT INFORMATION
  Report Type: 
  Country: None (occurrence: None)
  Receive Date: 20111227
  Receipt Date: 20111215
  Transmission Date: 20120403
  Serious: Yes (Other)
  Sender: FDA-Public Use
  Company Number: US-ROCHE-1025269

PATIENT

DRUGS (1)
  1. ALTEPLASE [Suspect]
     Indication: ISCHAEMIC STROKE
     Route: 042

REACTIONS (1)
  - HYPORESPONSIVE TO STIMULI [None]
